FAERS Safety Report 15746699 (Version 2)
Quarter: 2019Q1

REPORT INFORMATION
  Report Type: Spontaneous
  Country: US (occurrence: US)
  Receive Date: 20181220
  Receipt Date: 20190225
  Transmission Date: 20190417
  Serious: Yes (Hospitalization)
  Sender: FDA-Public Use
  Company Number: US-PRINSTON PHARMACEUTICAL INC.-2018PRN01189

PATIENT
  Sex: Female
  Weight: 92.97 kg

DRUGS (2)
  1. VALSARTAN. [Suspect]
     Active Substance: VALSARTAN
     Indication: HYPERTENSION
     Dosage: 320 MG, 1X/DAY
     Route: 048
     Dates: start: 2016, end: 20180428
  2. UNSPECIFIED MEDICATIONS [Concomitant]
     Active Substance: UNSPECIFIED INGREDIENT

REACTIONS (7)
  - Tremor [Not Recovered/Not Resolved]
  - Gallbladder disorder [Unknown]
  - Feeling hot [Not Recovered/Not Resolved]
  - Diarrhoea [Recovering/Resolving]
  - Blood pressure increased [Recovering/Resolving]
  - Asthenia [Not Recovered/Not Resolved]
  - Recalled product administered [Recovered/Resolved]

NARRATIVE: CASE EVENT DATE: 2018
